FAERS Safety Report 12628687 (Version 2)
Quarter: 2016Q3

REPORT INFORMATION
  Report Type: Spontaneous
  Country: US (occurrence: US)
  Receive Date: 20160808
  Receipt Date: 20160916
  Transmission Date: 20161109
  Serious: Yes (Other)
  Sender: FDA-Public Use
  Company Number: US-JAZZ-2016-US-004412

PATIENT
  Sex: Male

DRUGS (2)
  1. XYREM [Suspect]
     Active Substance: SODIUM OXYBATE
     Indication: NARCOLEPSY
     Dosage: 3 G, BID
     Route: 048
     Dates: start: 200612, end: 200701
  2. XYREM [Suspect]
     Active Substance: SODIUM OXYBATE
     Dosage: 0.75 G, BID
     Route: 048
     Dates: start: 200703, end: 2007

REACTIONS (3)
  - Seasonal allergy [Unknown]
  - Weight decreased [Unknown]
  - Sleep apnoea syndrome [Recovering/Resolving]
